FAERS Safety Report 19625640 (Version 1)
Quarter: 2021Q3

REPORT INFORMATION
  Report Type: Spontaneous
  Country: JP (occurrence: JP)
  Receive Date: 20210728
  Receipt Date: 20210728
  Transmission Date: 20211014
  Serious: Yes (Hospitalization, Other)
  Sender: FDA-Public Use
  Company Number: JP-DSJP-DSJ-2021-122810

PATIENT
  Age: 9 Decade
  Sex: Female

DRUGS (1)
  1. LIXIANA TABLETS 30MG [Suspect]
     Active Substance: EDOXABAN TOSYLATE
     Indication: ATRIAL FIBRILLATION
     Dosage: UNK, QD
     Route: 048

REACTIONS (5)
  - Anaemia [Unknown]
  - Large intestine polyp [Unknown]
  - Haematochezia [Unknown]
  - Renal impairment [Unknown]
  - Occult blood [Unknown]
